FAERS Safety Report 15719267 (Version 1)
Quarter: 2018Q4

REPORT INFORMATION
  Report Type: Report from Study
  Country: CN (occurrence: CN)
  Receive Date: 20181213
  Receipt Date: 20181213
  Transmission Date: 20190205
  Serious: Yes (Other)
  Sender: FDA-Public Use
  Company Number: CN-JNJFOC-20181202169

PATIENT

DRUGS (1)
  1. RISPERIDONE. [Suspect]
     Active Substance: RISPERIDONE
     Indication: SCHIZOPHRENIA
     Dosage: 4-6 MG/DAY
     Route: 065

REACTIONS (8)
  - Electrocardiogram QT prolonged [Unknown]
  - Blood creatine phosphokinase increased [Unknown]
  - Alpha hydroxybutyrate dehydrogenase increased [Unknown]
  - Conduction disorder [Unknown]
  - Blood lactate dehydrogenase increased [Unknown]
  - Electrocardiogram T wave abnormal [Unknown]
  - Aspartate aminotransferase increased [Unknown]
  - Blood creatine phosphokinase MB increased [Unknown]
